FAERS Safety Report 26099507 (Version 1)
Quarter: 2025Q4

REPORT INFORMATION
  Report Type: Spontaneous
  Country: GB (occurrence: GB)
  Receive Date: 20251128
  Receipt Date: 20251128
  Transmission Date: 20260118
  Serious: Yes (Hospitalization, Other)
  Sender: ASTELLAS
  Company Number: GB-ASTELLAS-2025-AER-060842

PATIENT
  Sex: Male

DRUGS (3)
  1. ENFORTUMAB VEDOTIN [Suspect]
     Active Substance: ENFORTUMAB VEDOTIN
     Indication: Metastatic carcinoma of the bladder
     Dosage: CYCLE 1 D1+8 3/52
     Route: 042
     Dates: start: 20250929
  2. ENFORTUMAB VEDOTIN [Suspect]
     Active Substance: ENFORTUMAB VEDOTIN
     Dosage: DOSE REDUCED ONE LEVEL.
     Route: 042
  3. PEMBROLIZUMAB [Concomitant]
     Active Substance: PEMBROLIZUMAB
     Indication: Product used for unknown indication
     Dosage: CYCLE 1
     Route: 065

REACTIONS (4)
  - Urosepsis [Recovered/Resolved]
  - Neutropenia [Unknown]
  - Colitis [Unknown]
  - Sepsis [Unknown]

NARRATIVE: CASE EVENT DATE: 20251011
